FAERS Safety Report 18377514 (Version 1)
Quarter: 2020Q4

REPORT INFORMATION
  Report Type: Spontaneous
  Country: US (occurrence: US)
  Receive Date: 20201013
  Receipt Date: 20201013
  Transmission Date: 20210114
  Serious: Yes (Other)
  Sender: FDA-Public Use
  Company Number: US-PFIZER INC-2020376902

PATIENT
  Age: 92 Year
  Sex: Female

DRUGS (4)
  1. HYDROXYZINE PAMOATE. [Suspect]
     Active Substance: HYDROXYZINE PAMOATE
     Dosage: UNK
     Dates: end: 19810105
  2. CEFAMANDOLE [Concomitant]
     Active Substance: CEFAMANDOLE
     Dosage: 1 G, 4X/DAY (EVERY 6 HR)
     Route: 042
  3. MEPERIDINE HCL [Interacting]
     Active Substance: MEPERIDINE HYDROCHLORIDE
     Dosage: UNK
     Dates: end: 19810105
  4. CIMETIDINE [Interacting]
     Active Substance: CIMETIDINE
     Dosage: 300 MG, 4X/DAY (EVERY 6 HR)
     Route: 042
     Dates: start: 19810102, end: 19810104

REACTIONS (6)
  - Disorientation [Recovered/Resolved]
  - Agitation [Recovered/Resolved]
  - Hallucination [Recovered/Resolved]
  - Toxicity to various agents [Unknown]
  - Drug interaction [Unknown]
  - Pyrexia [Recovering/Resolving]

NARRATIVE: CASE EVENT DATE: 198101
